FAERS Safety Report 5905123-3 (Version None)
Quarter: 2008Q4

REPORT INFORMATION
  Report Type: 
  Country: None (occurrence: None)
  Receive Date: 20081001
  Receipt Date: 20080911
  Transmission Date: 20090506
  Serious: Yes (Other)
  Sender: FDA-Public Use
  Company Number: CN-NOVOPROD-279927

PATIENT
  Age: 45 Year
  Sex: Male
  Weight: 60 kg

DRUGS (1)
  1. NOVOLIN R [Suspect]
     Indication: TYPE 2 DIABETES MELLITUS
     Dosage: 16-18 + 20-22 IU, QD
     Dates: start: 20060101, end: 20080801

REACTIONS (5)
  - DRUG HYPERSENSITIVITY [None]
  - DRY THROAT [None]
  - EYE OEDEMA [None]
  - LOSS OF CONSCIOUSNESS [None]
  - RASH GENERALISED [None]
